FAERS Safety Report 11673318 (Version 1)
Quarter: 2015Q4

REPORT INFORMATION
  Report Type: Spontaneous
  Country: US (occurrence: US)
  Receive Date: 20151028
  Receipt Date: 20151028
  Transmission Date: 20160304
  Serious: No
  Sender: FDA-Public Use
  Company Number: PHEH2015US009493

PATIENT
  Sex: Male

DRUGS (2)
  1. DEXMETHYLPHENIDATE HYDROCHLORIDE. [Suspect]
     Active Substance: DEXMETHYLPHENIDATE HYDROCHLORIDE
     Dosage: 15 MG, QD
     Route: 065
     Dates: start: 201504
  2. DEXMETHYLPHENIDATE HYDROCHLORIDE. [Suspect]
     Active Substance: DEXMETHYLPHENIDATE HYDROCHLORIDE
     Indication: PRODUCT USED FOR UNKNOWN INDICATION
     Dosage: 10 MG, UNK
     Route: 065
     Dates: start: 201503

REACTIONS (5)
  - Decreased appetite [Unknown]
  - Neck pain [Unknown]
  - Muscle twitching [Unknown]
  - Headache [Unknown]
  - Heart rate irregular [Unknown]
